FAERS Safety Report 7482491-5 (Version None)
Quarter: 2011Q2

REPORT INFORMATION
  Report Type: 
  Country: None (occurrence: None)
  Receive Date: 20110516
  Receipt Date: 20110511
  Transmission Date: 20111010
  Serious: Yes (Hospitalization)
  Sender: FDA-Public Use
  Company Number: AT-ABBOTT-11P-009-0725107-00

PATIENT
  Sex: Female
  Weight: 56 kg

DRUGS (7)
  1. ZYRTEC [Concomitant]
     Indication: MULTIPLE ALLERGIES
     Dosage: 10 MG 0-0-1
     Route: 065
  2. CODIDOL [Concomitant]
     Indication: ANTITUSSIVE THERAPY
     Dosage: 30MG 0-0-1/2
     Route: 065
     Dates: start: 20110502, end: 20110506
  3. CLARITHROMYCIN [Suspect]
     Indication: CHRONIC SINUSITIS
     Dosage: 2 X 500 MG/DAY
     Route: 048
  4. ZYRTEC [Concomitant]
     Indication: SEASONAL ALLERGY
  5. SIMVASTATIN [Concomitant]
     Indication: HYPERLIPIDAEMIA
     Dosage: 40 MG 1-0-0
     Route: 065
  6. CLARINASE [Concomitant]
     Indication: CHRONIC SINUSITIS
     Route: 065
     Dates: start: 20110503, end: 20110505
  7. ACETAMINOPHEN [Concomitant]
     Indication: ARTHRALGIA
     Dosage: 1-0-1 2 X 1G
     Route: 065
     Dates: start: 20110505, end: 20110506

REACTIONS (4)
  - LIVER FUNCTION TEST ABNORMAL [None]
  - INFECTION [None]
  - ASTHMA [None]
  - SINUSITIS [None]
